FAERS Safety Report 13343387 (Version 2)
Quarter: 2017Q1

REPORT INFORMATION
  Report Type: Spontaneous
  Country: IT (occurrence: IT)
  Receive Date: 20170316
  Receipt Date: 20170322
  Transmission Date: 20170428
  Serious: Yes (Hospitalization)
  Sender: FDA-Public Use
  Company Number: IT-MYLANLABS-2017M1015604

PATIENT

DRUGS (1)
  1. VANCOMICINA MYLAN [Suspect]
     Active Substance: VANCOMYCIN
     Indication: SEPTIC ARTHRITIS STAPHYLOCOCCAL
     Dosage: 1.2 G DAILY
     Route: 042
     Dates: start: 20170210, end: 20170225

REACTIONS (9)
  - Hepatosplenomegaly [Recovering/Resolving]
  - Pyrexia [Recovered/Resolved]
  - Eosinophilia [Recovering/Resolving]
  - Rash morbilliform [Recovering/Resolving]
  - Rash [Not Recovered/Not Resolved]
  - Salivary hypersecretion [Recovering/Resolving]
  - Oral mucosal exfoliation [Recovering/Resolving]
  - Lymphadenopathy [Recovering/Resolving]
  - Back pain [Recovering/Resolving]

NARRATIVE: CASE EVENT DATE: 20170223
